FAERS Safety Report 20974364 (Version 1)
Quarter: 2022Q2

REPORT INFORMATION
  Report Type: Spontaneous
  Country: US (occurrence: None)
  Receive Date: 20220616
  Receipt Date: 20220616
  Transmission Date: 20220721
  Serious: No
  Sender: FDA-Public Use
  Company Number: None

PATIENT
  Age: 66 Year
  Sex: Female
  Weight: 90 kg

DRUGS (6)
  1. CREST DENSIFY DAILY PROTECTION [Suspect]
     Active Substance: STANNOUS FLUORIDE
     Indication: Hyperaesthesia teeth
     Dosage: FREQUENCY : DAILY;?
     Route: 004
     Dates: start: 20220601, end: 20220615
  2. Thiamine 100mg qday [Concomitant]
     Dates: start: 19740707
  3. Folic acid 400 mcg qday [Concomitant]
     Dates: start: 20220516
  4. Vitamin D 5000 IU qo day [Concomitant]
     Dates: start: 20190610
  5. Cetirizine 10 mg qday [Concomitant]
     Dates: start: 20150302
  6. Equate Vision formula 50+ daily [Concomitant]

REACTIONS (2)
  - Hypoaesthesia [None]
  - Hypoaesthesia [None]

NARRATIVE: CASE EVENT DATE: 20220614
